FAERS Safety Report 6046006-0 (Version None)
Quarter: 2009Q1

REPORT INFORMATION
  Report Type: 
  Country: None (occurrence: None)
  Receive Date: 20090116
  Receipt Date: 20090106
  Transmission Date: 20090719
  Serious: Yes (Other)
  Sender: FDA-Public Use
  Company Number: PAR_02435_2008

PATIENT
  Sex: Female

DRUGS (4)
  1. MEGESTROL ACETATE [Suspect]
     Indication: MALNUTRITION
     Dosage: (400 MG QD ORAL)
     Route: 048
     Dates: start: 20080625, end: 20080717
  2. SINEMET [Concomitant]
  3. ARICEPT [Concomitant]
  4. CELEXA [Concomitant]

REACTIONS (1)
  - DEEP VEIN THROMBOSIS [None]
